FAERS Safety Report 8806662 (Version 1)
Quarter: 2012Q4

REPORT INFORMATION
  Report Type: Spontaneous
  Country: JP (occurrence: None)
  Receive Date: 20120919
  Receipt Date: 20120919
  Transmission Date: 20130627
  Serious: Yes (Hospitalization)
  Sender: FDA-Public Use
  Company Number: AXC-2012-000408

PATIENT
  Age: 66 Year
  Sex: Male

DRUGS (1)
  1. URSODEOXYCHOLIC ACID [Suspect]
     Indication: DRUG USE FOR UNKNOWN INDICATION

REACTIONS (2)
  - Dermatitis exfoliative [None]
  - Eczema [None]
